FAERS Safety Report 5608935-9 (Version None)
Quarter: 2008Q1

REPORT INFORMATION
  Report Type: 
  Country: None (occurrence: None)
  Receive Date: 20080129
  Receipt Date: 20080129
  Transmission Date: 20080703
  Serious: Yes (Other)
  Sender: FDA-Public Use
  Company Number: None

PATIENT
  Age: 42 Year
  Sex: Female
  Weight: 99.7913 kg

DRUGS (1)
  1. AMBIEN [Suspect]
     Indication: INSOMNIA
     Dosage: 1 @ NITE PO
     Route: 048
     Dates: start: 19920303, end: 20070915

REACTIONS (3)
  - ABNORMAL SLEEP-RELATED EVENT [None]
  - AMNESIA [None]
  - DEPENDENCE [None]
